FAERS Safety Report 6807041-5 (Version None)
Quarter: 2010Q2

REPORT INFORMATION
  Report Type: 
  Country: None (occurrence: None)
  Receive Date: 20100629
  Receipt Date: 20081020
  Transmission Date: 20101027
  Serious: No
  Sender: FDA-Public Use
  Company Number: US-PFIZER INC-2008053561

PATIENT
  Sex: Male
  Weight: 81.8 kg

DRUGS (5)
  1. ARTHROTEC [Suspect]
     Indication: PAIN
     Route: 048
     Dates: start: 20060110
  2. AMITRIPTYLINE [Concomitant]
     Route: 048
  3. TRAZODONE HYDROCHLORIDE [Concomitant]
     Route: 048
  4. ZOLOFT [Concomitant]
     Route: 048
  5. WELLBUTRIN SR [Concomitant]

REACTIONS (1)
  - PRODUCT QUALITY ISSUE [None]
